FAERS Safety Report 15252749 (Version 2)
Quarter: 2019Q3

REPORT INFORMATION
  Report Type: Spontaneous
  Country: US (occurrence: US)
  Receive Date: 20180807
  Receipt Date: 20190805
  Transmission Date: 20191004
  Serious: No
  Sender: FDA-Public Use
  Company Number: US-RADIUS HEALTH INC.-2018US001151

PATIENT
  Age: 59 Year
  Sex: Female

DRUGS (2)
  1. NATURE-THROID [Concomitant]
     Active Substance: THYROID, PORCINE
     Indication: PRODUCT USED FOR UNKNOWN INDICATION
  2. TYMLOS [Suspect]
     Active Substance: ABALOPARATIDE
     Indication: OSTEOPOROSIS POSTMENOPAUSAL
     Dosage: 80 MCG, DAILY
     Route: 058
     Dates: start: 20171229, end: 201901

REACTIONS (2)
  - Ill-defined disorder [Recovered/Resolved]
  - Dizziness [Unknown]

NARRATIVE: CASE EVENT DATE: 201805
